FAERS Safety Report 11312696 (Version 1)
Quarter: 2015Q3

REPORT INFORMATION
  Report Type: Spontaneous
  Country: US (occurrence: None)
  Receive Date: 20150724
  Receipt Date: 20150724
  Transmission Date: 20151125
  Serious: Yes (Other)
  Sender: FDA-Public Use
  Company Number: None

PATIENT
  Age: 38 Year
  Sex: Female
  Weight: 68.04 kg

DRUGS (4)
  1. ZOLOFT [Concomitant]
     Active Substance: SERTRALINE HYDROCHLORIDE
  2. MIRENA [Concomitant]
     Active Substance: LEVONORGESTREL
  3. XANEX [Concomitant]
  4. MIRENA [Suspect]
     Active Substance: LEVONORGESTREL
     Indication: CONTRACEPTION

REACTIONS (12)
  - Urinary tract infection [None]
  - Nausea [None]
  - Breast neoplasm [None]
  - Vaginal infection [None]
  - Hypoaesthesia [None]
  - Alopecia [None]
  - Neck pain [None]
  - Dizziness [None]
  - Arthralgia [None]
  - Neuralgia [None]
  - Pelvic pain [None]
  - Anxiety [None]

NARRATIVE: CASE EVENT DATE: 20150723
